FAERS Safety Report 15768439 (Version 3)
Quarter: 2019Q4

REPORT INFORMATION
  Report Type: Spontaneous
  Country: GB (occurrence: GB)
  Receive Date: 20181227
  Receipt Date: 20191011
  Transmission Date: 20200122
  Serious: Yes (Hospitalization, Other)
  Sender: FDA-Public Use
  Company Number: GB-MYLANLABS-2018M1096922

PATIENT
  Sex: Female

DRUGS (1)
  1. CLOZARIL [Suspect]
     Active Substance: CLOZAPINE
     Indication: SCHIZOPHRENIA
     Dosage: 350 MILLIGRAM, QD
     Route: 048
     Dates: start: 20060929

REACTIONS (8)
  - Guillain-Barre syndrome [Unknown]
  - Weight decreased [Unknown]
  - Dizziness [Unknown]
  - Salivary hypersecretion [Unknown]
  - Syncope [Unknown]
  - Back injury [Unknown]
  - Oesophageal disorder [Unknown]
  - Fatigue [Unknown]

NARRATIVE: CASE EVENT DATE: 2018
